FAERS Safety Report 10453856 (Version 2)
Quarter: 2014Q4

REPORT INFORMATION
  Report Type: Spontaneous
  Country: US (occurrence: US)
  Receive Date: 20140915
  Receipt Date: 20141205
  Transmission Date: 20150528
  Serious: No
  Sender: FDA-Public Use
  Company Number: US-BRISTOL-MYERS SQUIBB COMPANY-21312897

PATIENT
  Age: 61 Year
  Sex: Male
  Weight: 107.03 kg

DRUGS (1)
  1. ELIQUIS [Suspect]
     Active Substance: APIXABAN
     Indication: CEREBROVASCULAR ACCIDENT PROPHYLAXIS
     Dosage: LAST DOSE:22/23 OF AUGUST 2014
     Route: 048
     Dates: start: 20140724

REACTIONS (19)
  - Gingival bleeding [Unknown]
  - Paraesthesia [Unknown]
  - Chromaturia [Unknown]
  - Somnolence [Unknown]
  - Pain in extremity [Unknown]
  - Haemoptysis [Unknown]
  - Abnormal behaviour [Unknown]
  - Thinking abnormal [Unknown]
  - Blood urine present [Unknown]
  - Diarrhoea [Unknown]
  - Hypoaesthesia [Unknown]
  - Urine potassium increased [Unknown]
  - Arthralgia [Recovering/Resolving]
  - Urine analysis abnormal [Unknown]
  - Vision blurred [Unknown]
  - Muscle spasms [Unknown]
  - Abdominal pain upper [Unknown]
  - Dizziness [Unknown]
  - Hyperhidrosis [Unknown]
